FAERS Safety Report 8368216-X (Version None)
Quarter: 2012Q2

REPORT INFORMATION
  Report Type: 
  Country: None (occurrence: None)
  Receive Date: 20120517
  Receipt Date: 20120508
  Transmission Date: 20120825
  Serious: Yes (Congenital Anomaly, Other)
  Sender: FDA-Public Use
  Company Number: PHHY2012DE039495

PATIENT

DRUGS (8)
  1. ENALAPRIL MALEATE [Suspect]
     Route: 064
  2. ALENDRONATE SODIUM [Suspect]
     Route: 064
  3. AZATHIOPRINE [Suspect]
     Route: 064
  4. CELLCEPT [Concomitant]
  5. PREDNISONE [Suspect]
     Route: 064
  6. ASPIRIN [Suspect]
     Route: 064
  7. MYFORTIC [Concomitant]
  8. HYDROXYCHLOROQUINE SULFATE [Suspect]
     Route: 064

REACTIONS (12)
  - COLOBOMA [None]
  - BRACHYCEPHALY [None]
  - FOETAL EXPOSURE DURING PREGNANCY [None]
  - CLINODACTYLY [None]
  - HYPERTELORISM OF ORBIT [None]
  - OESOPHAGEAL ATRESIA [None]
  - EXTERNAL AUDITORY CANAL ATRESIA [None]
  - CAMPTODACTYLY CONGENITAL [None]
  - OLFACTORY NERVE DISORDER [None]
  - MICROTIA [None]
  - MICROGNATHIA [None]
  - CONGENITAL ARTERIAL MALFORMATION [None]
